FAERS Safety Report 6363131-5 (Version None)
Quarter: 2009Q3

REPORT INFORMATION
  Report Type: 
  Country: None (occurrence: None)
  Receive Date: 20090919
  Receipt Date: 20090623
  Transmission Date: 20100115
  Serious: No
  Sender: FDA-Public Use
  Company Number: US-ABBOTT-09P-163-0581471-00

PATIENT
  Sex: Female
  Weight: 102.15 kg

DRUGS (4)
  1. HUMIRA [Suspect]
     Indication: PSORIASIS
     Dates: start: 20090504
  2. CYCLOSPORINE [Concomitant]
     Indication: PSORIASIS
     Dates: start: 20090401, end: 20090525
  3. GABAPENTIN [Concomitant]
     Indication: RESTLESS LEGS SYNDROME
  4. LUNESTA [Concomitant]
     Indication: INSOMNIA

REACTIONS (4)
  - DRUG INEFFECTIVE [None]
  - FEELING HOT [None]
  - PRURITUS [None]
  - PSORIASIS [None]
